FAERS Safety Report 9778763 (Version 2)
Quarter: 2013Q4

REPORT INFORMATION
  Report Type: Spontaneous
  Country: US (occurrence: US)
  Receive Date: 20131223
  Receipt Date: 20131223
  Transmission Date: 20140711
  Serious: Yes (Disabling)
  Sender: FDA-Public Use
  Company Number: US-BMSGILMSD-2010-0029823

PATIENT
  Age: 47 Year
  Sex: Male

DRUGS (5)
  1. ATRIPLA [Suspect]
     Indication: HIV INFECTION
     Route: 048
     Dates: start: 200612, end: 20100519
  2. FISH OIL [Concomitant]
  3. AMBIEN [Concomitant]
     Dates: start: 20081204
  4. GLUCOSAMINE [Concomitant]
  5. OXYCONTIN [Concomitant]

REACTIONS (5)
  - Fanconi syndrome acquired [Recovering/Resolving]
  - Osteomalacia [Recovering/Resolving]
  - Asthenia [Recovering/Resolving]
  - Fatigue [Recovering/Resolving]
  - Bone pain [Recovering/Resolving]
